FAERS Safety Report 9333618 (Version 1)
Quarter: 2013Q2

REPORT INFORMATION
  Report Type: Spontaneous
  Country: US (occurrence: US)
  Receive Date: 20130606
  Receipt Date: 20130606
  Transmission Date: 20140414
  Serious: No
  Sender: FDA-Public Use
  Company Number: US-AMGEN-USASP2012077184

PATIENT
  Age: 81 Year
  Sex: Female

DRUGS (2)
  1. PROLIA [Suspect]
     Indication: OSTEOPOROSIS POSTMENOPAUSAL
     Dosage: UNK
     Dates: start: 20121126
  2. VITAMINS [Concomitant]
     Dosage: UNK

REACTIONS (3)
  - Nausea [Not Recovered/Not Resolved]
  - Chills [Recovered/Resolved]
  - Abdominal pain upper [Not Recovered/Not Resolved]
